FAERS Safety Report 11097110 (Version 3)
Quarter: 2019Q2

REPORT INFORMATION
  Report Type: Report from Study
  Country: BR (occurrence: BR)
  Receive Date: 20150507
  Receipt Date: 20190617
  Transmission Date: 20190711
  Serious: Yes (Hospitalization, Other)
  Sender: FDA-Public Use
  Company Number: BR-SA-2015SA056863

PATIENT
  Age: 19 Year
  Sex: Female

DRUGS (2)
  1. ALGLUCOSIDASE ALFA [Suspect]
     Active Substance: ALGLUCOSIDASE ALFA
     Dosage: 50 MG,UNK
     Route: 041
     Dates: start: 20110914, end: 2015
  2. ALGLUCOSIDASE ALFA [Suspect]
     Active Substance: ALGLUCOSIDASE ALFA
     Indication: GLYCOGEN STORAGE DISEASE TYPE II
     Dosage: 50 MG,UNK
     Route: 041
     Dates: start: 20110901

REACTIONS (7)
  - Diplegia [Unknown]
  - Gait inability [Recovered/Resolved]
  - Haemorrhage [Unknown]
  - Surgery [Recovered/Resolved]
  - Pleural effusion [Unknown]
  - Nerve compression [Unknown]
  - Total lung capacity decreased [Recovered/Resolved]
